FAERS Safety Report 20175698 (Version 1)
Quarter: 2021Q4

REPORT INFORMATION
  Report Type: Report from Study
  Country: DE (occurrence: DE)
  Receive Date: 20211213
  Receipt Date: 20211213
  Transmission Date: 20220303
  Serious: Yes (Hospitalization, Other)
  Sender: FDA-Public Use
  Company Number: DE-TAKEDA-2021TUS077601

PATIENT
  Age: 81 Year
  Sex: Female

DRUGS (16)
  1. TEDUGLUTIDE [Suspect]
     Active Substance: TEDUGLUTIDE
     Indication: Short-bowel syndrome
     Dosage: 4.000 MILLIGRAM, QD
     Route: 065
     Dates: start: 20141022, end: 201802
  2. TEDUGLUTIDE [Suspect]
     Active Substance: TEDUGLUTIDE
     Indication: Short-bowel syndrome
     Dosage: 4.000 MILLIGRAM, QD
     Route: 065
     Dates: start: 20141022, end: 201802
  3. TEDUGLUTIDE [Suspect]
     Active Substance: TEDUGLUTIDE
     Indication: Short-bowel syndrome
     Dosage: 4.000 MILLIGRAM, QD
     Route: 065
     Dates: start: 20141022, end: 201802
  4. TEDUGLUTIDE [Suspect]
     Active Substance: TEDUGLUTIDE
     Indication: Short-bowel syndrome
     Dosage: 4.000 MILLIGRAM, QD
     Route: 065
     Dates: start: 20141022, end: 201802
  5. TEDUGLUTIDE [Suspect]
     Active Substance: TEDUGLUTIDE
     Dosage: 2.000 MILLIGRAM, QD
     Route: 065
     Dates: start: 201802, end: 20180523
  6. TEDUGLUTIDE [Suspect]
     Active Substance: TEDUGLUTIDE
     Dosage: 2.000 MILLIGRAM, QD
     Route: 065
     Dates: start: 201802, end: 20180523
  7. TEDUGLUTIDE [Suspect]
     Active Substance: TEDUGLUTIDE
     Dosage: 2.000 MILLIGRAM, QD
     Route: 065
     Dates: start: 201802, end: 20180523
  8. TEDUGLUTIDE [Suspect]
     Active Substance: TEDUGLUTIDE
     Dosage: 2.000 MILLIGRAM, QD
     Route: 065
     Dates: start: 201802, end: 20180523
  9. TEDUGLUTIDE [Suspect]
     Active Substance: TEDUGLUTIDE
     Dosage: 999.0 MILLIGRAM, QD
     Route: 065
     Dates: start: 20180523
  10. TEDUGLUTIDE [Suspect]
     Active Substance: TEDUGLUTIDE
     Dosage: 999.0 MILLIGRAM, QD
     Route: 065
     Dates: start: 20180523
  11. TEDUGLUTIDE [Suspect]
     Active Substance: TEDUGLUTIDE
     Dosage: 999.0 MILLIGRAM, QD
     Route: 065
     Dates: start: 20180523
  12. TEDUGLUTIDE [Suspect]
     Active Substance: TEDUGLUTIDE
     Dosage: 999.0 MILLIGRAM, QD
     Route: 065
     Dates: start: 20180523
  13. DEVIT [Concomitant]
     Indication: Vitamin D deficiency
     Dosage: 0.06 MILLIGRAM, QD
     Route: 048
     Dates: start: 202001
  14. MAGNO SANOL UNO [Concomitant]
     Indication: Magnesium deficiency
     Dosage: 150.0 MILLIGRAM, TID
     Route: 048
     Dates: start: 20200115
  15. FOSFOMYCIN [Concomitant]
     Active Substance: FOSFOMYCIN
     Indication: Urinary tract infection
     Dosage: 999.00 UNK, ONE DOSE
     Route: 065
     Dates: start: 201905, end: 201905
  16. CALCIUM CARBONATE\CHOLECALCIFEROL [Concomitant]
     Active Substance: CALCIUM CARBONATE\CHOLECALCIFEROL
     Indication: Vitamin supplementation
     Dosage: 0.03 MILLIGRAM, TID
     Route: 048
     Dates: start: 20190309

REACTIONS (1)
  - Atrial fibrillation [Recovered/Resolved]

NARRATIVE: CASE EVENT DATE: 20210126
